FAERS Safety Report 23964119 (Version 1)
Quarter: 2024Q2

REPORT INFORMATION
  Report Type: Spontaneous
  Country: US (occurrence: None)
  Receive Date: 20240611
  Receipt Date: 20240611
  Transmission Date: 20240716
  Serious: Yes (Disabling)
  Sender: FDA-Public Use
  Company Number: None

PATIENT
  Age: 80 Year
  Sex: Male
  Weight: 65.25 kg

DRUGS (13)
  1. GABAPENTIN [Suspect]
     Active Substance: GABAPENTIN
     Indication: Pain in extremity
     Dosage: 90 CAPSULES 3 TIMES A DAY ORAL
     Route: 048
     Dates: start: 20240607
  2. EQUATE ACETAMINOPHEN [Suspect]
     Active Substance: ACETAMINOPHEN
     Indication: Pain in extremity
     Dosage: OTHER QUANTITY : 225 CAPSULE(S)?FREQUENCY : EVERY 6 HOURS?
     Route: 048
     Dates: start: 20240602, end: 20240610
  3. MODAFINIL [Concomitant]
     Active Substance: MODAFINIL
  4. PANTOPRAZOLE [Concomitant]
     Active Substance: PANTOPRAZOLE
  5. FLUTICASONE [Concomitant]
     Active Substance: FLUTICASONE
  6. COENZYME Q10 [Concomitant]
     Active Substance: DIETARY SUPPLEMENT\UBIDECARENONE
  7. FLAXSEED [Concomitant]
     Active Substance: FLAX SEED
  8. VITAMIN KD3/K2 [Concomitant]
  9. ZINC [Concomitant]
     Active Substance: PYRITHIONE ZINC\ZINC\ZINC CHLORIDE
  10. IRON [Concomitant]
     Active Substance: IRON
  11. MAGNESIUM [Concomitant]
     Active Substance: MAGNESIUM
  12. CRANBERRY [Concomitant]
     Active Substance: CRANBERRY
  13. IODINE [Concomitant]
     Active Substance: IODINE

REACTIONS (2)
  - Dizziness [None]
  - Drug ineffective [None]

NARRATIVE: CASE EVENT DATE: 20240610
